FAERS Safety Report 23543925 (Version 1)
Quarter: 2024Q1

REPORT INFORMATION
  Report Type: Spontaneous
  Country: CH (occurrence: CH)
  Receive Date: 20240220
  Receipt Date: 20240220
  Transmission Date: 20240409
  Serious: Yes (Death)
  Sender: FDA-Public Use
  Company Number: None

PATIENT
  Age: 89 Year
  Sex: Male
  Weight: 90.6 kg

DRUGS (19)
  1. RIVAROXABAN [Suspect]
     Active Substance: RIVAROXABAN
     Indication: Atrial fibrillation
     Route: 048
     Dates: start: 20130101, end: 20240103
  2. RIVAROXABAN [Suspect]
     Active Substance: RIVAROXABAN
     Dosage: 15 MG
     Route: 048
     Dates: start: 20240103, end: 20240104
  3. CLARITHROMYCIN [Suspect]
     Active Substance: CLARITHROMYCIN
     Indication: Atypical pneumonia
     Dosage: 500 MG, UNK
     Route: 048
     Dates: start: 20240101, end: 20240103
  4. PIPERACILLIN SODIUM\TAZOBACTAM SODIUM [Suspect]
     Active Substance: PIPERACILLIN SODIUM\TAZOBACTAM SODIUM
     Route: 042
     Dates: start: 20240101, end: 20240101
  5. PIPERACILLIN SODIUM\TAZOBACTAM SODIUM [Suspect]
     Active Substance: PIPERACILLIN SODIUM\TAZOBACTAM SODIUM
     Dosage: 4.5 G
     Route: 042
     Dates: start: 20240102
  6. DOXYCYCLINE [Suspect]
     Active Substance: DOXYCYCLINE
     Dates: start: 20240103
  7. PREDNISOLONE [Suspect]
     Active Substance: PREDNISOLONE
     Indication: Acute respiratory distress syndrome
     Dosage: 50 MG
     Route: 048
     Dates: start: 20231107, end: 20231128
  8. PREDNISOLONE [Suspect]
     Active Substance: PREDNISOLONE
     Indication: Acute respiratory distress syndrome
     Dates: start: 20231107, end: 20231128
  9. DAPAGLIFLOZIN [Concomitant]
     Active Substance: DAPAGLIFLOZIN
     Indication: Hypertensive heart disease
     Route: 048
     Dates: end: 20240105
  10. ATROVENT [Concomitant]
     Active Substance: IPRATROPIUM BROMIDE
     Indication: Atypical pneumonia
     Dosage: 2 ML, UNK
     Route: 055
     Dates: start: 20240102, end: 20240105
  11. ALBUTEROL [Concomitant]
     Active Substance: ALBUTEROL
     Indication: Atypical pneumonia
     Dosage: 1.25 MG
     Route: 055
     Dates: start: 20240102, end: 20240105
  12. NEBIVOLOL [Concomitant]
     Active Substance: NEBIVOLOL
     Indication: Coronary artery disease
     Route: 048
     Dates: end: 20240102
  13. PANTOZOL [Concomitant]
     Active Substance: PANTOPRAZOLE SODIUM
     Route: 048
     Dates: start: 202311, end: 20240105
  14. PERINDOPRIL ARGININE [Concomitant]
     Active Substance: PERINDOPRIL ARGININE
     Indication: Coronary artery disease
     Route: 048
     Dates: end: 20240102
  15. ALDACTONE [Concomitant]
     Active Substance: SPIRONOLACTONE
     Indication: Hypertensive heart disease
     Route: 048
     Dates: end: 20240102
  16. TORSEMIDE [Concomitant]
     Active Substance: TORSEMIDE
     Indication: Hypertensive heart disease
     Route: 048
     Dates: end: 20240102
  17. SERETIDE [Concomitant]
     Active Substance: FLUTICASONE PROPIONATE\SALMETEROL XINAFOATE
     Indication: Asthma
     Route: 055
     Dates: end: 20240105
  18. CALCIUM CHLORIDE\MAGNESIUM CHLORIDE\MALIC ACID\POTASSIUM CHLORIDE\SODI [Concomitant]
     Active Substance: CALCIUM CHLORIDE\MAGNESIUM CHLORIDE\MALIC ACID\POTASSIUM CHLORIDE\SODIUM ACETATE\SODIUM CHLORIDE
     Route: 042
     Dates: start: 20240102, end: 20240104
  19. ROCEPHIN [Concomitant]
     Active Substance: CEFTRIAXONE SODIUM
     Dosage: 2 G, UNK
     Route: 042
     Dates: start: 20240101, end: 20240101

REACTIONS (1)
  - Pulmonary haemorrhage [Fatal]

NARRATIVE: CASE EVENT DATE: 20240104
